FAERS Safety Report 25897548 (Version 1)
Quarter: 2025Q4

REPORT INFORMATION
  Report Type: Report from Study
  Country: US (occurrence: US)
  Receive Date: 20251008
  Receipt Date: 20251008
  Transmission Date: 20260118
  Serious: Yes (Other)
  Sender: ELI LILLY AND COMPANY
  Company Number: US-ELI_LILLY_AND_COMPANY-US202509026372

PATIENT
  Age: 73 Year
  Sex: Male

DRUGS (2)
  1. TIRZEPATIDE [Suspect]
     Active Substance: TIRZEPATIDE
     Indication: Weight control
     Dosage: UNK UNK, UNKNOWN
     Route: 058
     Dates: start: 20250501
  2. TIRZEPATIDE [Suspect]
     Active Substance: TIRZEPATIDE
     Indication: Obstructive sleep apnoea syndrome
     Dosage: 5 MG, UNKNOWN
     Route: 058
     Dates: start: 20250501

REACTIONS (10)
  - Arrhythmia [Unknown]
  - Dyspnoea [Unknown]
  - Cold sweat [Unknown]
  - Feeling abnormal [Unknown]
  - Blood pressure decreased [Unknown]
  - Dyspepsia [Unknown]
  - Nausea [Unknown]
  - Eructation [Unknown]
  - Fatigue [Unknown]
  - Dizziness [Unknown]
